FAERS Safety Report 5261020-0 (Version None)
Quarter: 2007Q1

REPORT INFORMATION
  Report Type: 
  Country: None (occurrence: None)
  Receive Date: 20070309
  Receipt Date: 20070228
  Transmission Date: 20070707
  Serious: Yes (Life-Threatening, Hospitalization)
  Sender: FDA-Public Use
  Company Number: US-ABBOTT-07P-163-0360797-00

PATIENT
  Age: 17 Year
  Sex: Male

DRUGS (1)
  1. DILAUDID [Suspect]
     Indication: RENAL INJURY
     Route: 042

REACTIONS (3)
  - LUNG INJURY [None]
  - OVERDOSE [None]
  - PNEUMONIA ASPIRATION [None]
